FAERS Safety Report 7296754-X (Version None)
Quarter: 2011Q1

REPORT INFORMATION
  Report Type: 
  Country: None (occurrence: None)
  Receive Date: 20110216
  Receipt Date: 20110214
  Transmission Date: 20110831
  Serious: Yes (Congenital Anomaly)
  Sender: FDA-Public Use
  Company Number: A0906656A

PATIENT
  Sex: Male
  Weight: 4.3 kg

DRUGS (2)
  1. PAXIL [Suspect]
     Indication: POSTPARTUM DEPRESSION
     Route: 064
  2. PRENATAL VITAMINS [Concomitant]

REACTIONS (5)
  - CONGENITAL ANOMALY [None]
  - PULMONARY VASCULAR DISORDER [None]
  - MITRAL VALVE INCOMPETENCE [None]
  - CARDIAC MURMUR [None]
  - DRUG EXPOSURE DURING PREGNANCY [None]
